FAERS Safety Report 23033872 (Version 1)
Quarter: 2023Q4

REPORT INFORMATION
  Report Type: Spontaneous
  Country: US (occurrence: None)
  Receive Date: 20231005
  Receipt Date: 20231005
  Transmission Date: 20240110
  Serious: Yes (Hospitalization)
  Sender: FDA-Public Use
  Company Number: None

PATIENT
  Sex: Female

DRUGS (33)
  1. ENBREL [Suspect]
     Active Substance: ETANERCEPT
     Indication: Rheumatoid arthritis
     Dosage: FREQUENCY : WEEKLY;?
     Route: 058
     Dates: start: 20211209
  2. ALBUTEROL AER HFA [Concomitant]
  3. ALPRAZOLAM TAB 0.5MG [Concomitant]
  4. ALPRAZOLAM TAB 1MG [Concomitant]
  5. AMBIEN CR [Concomitant]
  6. AZITHROMYCIN [Concomitant]
     Active Substance: AZITHROMYCIN
  7. BUPREN/NALOX MIS 2-0.5MG [Concomitant]
  8. BUPREN/NALOX MIS 8-2MG [Concomitant]
  9. CHLORHEX GLU SOL [Concomitant]
  10. CLONAZEPAM [Concomitant]
     Active Substance: CLONAZEPAM
  11. CYCLOBENZAPRINE [Concomitant]
     Active Substance: CYCLOBENZAPRINE
  12. FLUCONAZOLE [Concomitant]
     Active Substance: FLUCONAZOLE
  13. FLUOXETINE [Concomitant]
     Active Substance: FLUOXETINE HYDROCHLORIDE
  14. FOLIC ACID [Concomitant]
     Active Substance: FOLIC ACID
  15. GABAPENTIN [Concomitant]
     Active Substance: GABAPENTIN
  16. HUMIRA [Concomitant]
     Active Substance: ADALIMUMAB
  17. HYDROXYCHLOROQUINE [Concomitant]
     Active Substance: HYDROXYCHLOROQUINE
  18. LEVOTHYROXIN TAB 100MCG [Concomitant]
  19. LEVOTHYROXIN TAB 75MCG [Concomitant]
  20. LEVOTHYROXIN TAB 88MCG [Concomitant]
  21. METHOCARBAMOL [Concomitant]
     Active Substance: METHOCARBAMOL
  22. METHOTREXATE [Concomitant]
     Active Substance: METHOTREXATE
  23. METHYLPREDNISOLONE [Concomitant]
     Active Substance: METHYLPREDNISOLONE
  24. OLANZAPINE TAB 2.5MG [Concomitant]
  25. OLANZAPINE TAB 5MG [Concomitant]
  26. ONDANSETRON [Concomitant]
     Active Substance: ONDANSETRON
  27. ONDANSETRON TAB 4MG ODT [Concomitant]
  28. ONDANSETRON TAB 8MG ODT [Concomitant]
  29. PREDNISONE [Concomitant]
     Active Substance: PREDNISONE
  30. PREDNISONE [Concomitant]
     Active Substance: PREDNISONE
  31. PROZAC [Concomitant]
     Active Substance: FLUOXETINE HYDROCHLORIDE
  32. TRAZODONE [Concomitant]
     Active Substance: TRAZODONE HYDROCHLORIDE
  33. ZOLPIDEM [Concomitant]
     Active Substance: ZOLPIDEM TARTRATE

REACTIONS (3)
  - Therapy interrupted [None]
  - Infection [None]
  - Illness [None]
